FAERS Safety Report 12737185 (Version 1)
Quarter: 2016Q3

REPORT INFORMATION
  Report Type: Report from Study
  Country: CA (occurrence: CA)
  Receive Date: 20160913
  Receipt Date: 20160913
  Transmission Date: 20161109
  Serious: Yes (Hospitalization)
  Sender: FDA-Public Use
  Company Number: CA-ASTELLAS-2016US033845

PATIENT
  Age: 59 Year
  Sex: Female

DRUGS (3)
  1. TRASTUZUMAB [Suspect]
     Active Substance: TRASTUZUMAB
     Route: 042
  2. TRASTUZUMAB [Suspect]
     Active Substance: TRASTUZUMAB
     Indication: BREAST CANCER
     Dosage: 8 MG/KG, TOTAL SINGLE DOSE
     Route: 042
     Dates: start: 20160808
  3. ENZALUTAMIDE [Suspect]
     Active Substance: ENZALUTAMIDE
     Indication: BREAST CANCER
     Route: 048
     Dates: start: 20160808, end: 20160826

REACTIONS (2)
  - Vomiting [Not Recovered/Not Resolved]
  - Embolism [Not Recovered/Not Resolved]

NARRATIVE: CASE EVENT DATE: 20160827
